FAERS Safety Report 20652387 (Version 1)
Quarter: 2022Q1

REPORT INFORMATION
  Report Type: Spontaneous
  Country: FR (occurrence: FR)
  Receive Date: 20220330
  Receipt Date: 20220330
  Transmission Date: 20220423
  Serious: Yes (Congenital Anomaly, Other)
  Sender: FDA-Public Use
  Company Number: FR-ABBVIE-22K-056-4335808-00

PATIENT
  Sex: Male

DRUGS (1)
  1. DEPAKOTE [Suspect]
     Active Substance: DIVALPROEX SODIUM
     Indication: Maternal exposure timing unspecified
     Route: 064

REACTIONS (12)
  - Foetal growth restriction [Unknown]
  - Dysmorphism [Unknown]
  - Heart disease congenital [Unknown]
  - Pain in extremity [Unknown]
  - Reading disorder [Unknown]
  - Dysgraphia [Unknown]
  - Talipes [Unknown]
  - Deafness unilateral [Unknown]
  - Kidney malrotation [Unknown]
  - Muscle tone disorder [Unknown]
  - Ear, nose and throat disorder [Unknown]
  - Foetal exposure during pregnancy [Unknown]

NARRATIVE: CASE EVENT DATE: 20040812
